FAERS Safety Report 9815822 (Version 1)
Quarter: 2014Q1

REPORT INFORMATION
  Report Type: Not Available
  Country: ES (occurrence: ES)
  Receive Date: 20140114
  Receipt Date: 20140114
  Transmission Date: 20141002
  Serious: Yes (Death)
  Sender: FDA-Public Use
  Company Number: ES-ASTELLAS-2014EU000119

PATIENT
  Age: 59 Year
  Sex: Female

DRUGS (2)
  1. PROGRAF [Suspect]
     Indication: BONE MARROW TRANSPLANT
     Dosage: 8 MG, UNKNOWN/D
     Route: 048
     Dates: start: 20130422, end: 20130526
  2. PROGRAF [Suspect]
     Indication: PROPHYLAXIS AGAINST GRAFT VERSUS HOST DISEASE

REACTIONS (5)
  - Leukoencephalopathy [Fatal]
  - Gait disturbance [Recovered/Resolved]
  - Disorientation [Recovered/Resolved]
  - Amnesia [Recovered/Resolved]
  - Hallucinations, mixed [Recovered/Resolved]
